FAERS Safety Report 24210631 (Version 1)
Quarter: 2024Q3

REPORT INFORMATION
  Report Type: Spontaneous
  Country: ES (occurrence: ES)
  Receive Date: 20240814
  Receipt Date: 20240814
  Transmission Date: 20241017
  Serious: Yes (Hospitalization)
  Sender: TEVA
  Company Number: None

PATIENT
  Age: 64 Year
  Sex: Male

DRUGS (2)
  1. ABIRATERONE [Suspect]
     Active Substance: ABIRATERONE
     Indication: Prostate cancer
     Dosage: ABIRATERONE ACETATE (8349AC)
     Route: 048
     Dates: start: 20231215, end: 20240402
  2. DECAPEPTYL (ACETATE) [Suspect]
     Active Substance: TRIPTORELIN ACETATE
     Indication: Prostate cancer
     Dosage: DECAPEPTYL SEMI-ANNUAL 22.5 MG POWDER AND SOLVENT FOR INJECTABLE PROLONGED RELEASE SUSPENSION
     Route: 030
     Dates: start: 20240104

REACTIONS (2)
  - Hyperbilirubinaemia [Recovered/Resolved]
  - Hepatocellular injury [Recovered/Resolved]

NARRATIVE: CASE EVENT DATE: 20240403
